FAERS Safety Report 8401366-8 (Version None)
Quarter: 2012Q2

REPORT INFORMATION
  Report Type: 
  Country: None (occurrence: None)
  Receive Date: 20120525
  Receipt Date: 20120514
  Transmission Date: 20120825
  Serious: Yes (Other)
  Sender: FDA-Public Use
  Company Number: 2012P1029788

PATIENT
  Age: 88 Year
  Sex: Male

DRUGS (5)
  1. FAMOTIDINE [Suspect]
     Indication: GASTROOESOPHAGEAL REFLUX DISEASE
     Dosage: 40 MG;QD;PO 10 MG;QD;PO
     Route: 048
     Dates: start: 20120201
  2. FAMOTIDINE [Suspect]
     Indication: GASTROOESOPHAGEAL REFLUX DISEASE
     Dosage: 40 MG;QD;PO 10 MG;QD;PO
     Route: 048
     Dates: start: 20120401
  3. RIKKUNSHI-TO [Concomitant]
  4. DEPAS [Concomitant]
  5. MARZULENE [Concomitant]

REACTIONS (4)
  - URTICARIA [None]
  - MYALGIA [None]
  - OCULOMUCOCUTANEOUS SYNDROME [None]
  - RHABDOMYOLYSIS [None]
